FAERS Safety Report 6303696-2 (Version None)
Quarter: 2009Q3

REPORT INFORMATION
  Report Type: 
  Country: None (occurrence: None)
  Receive Date: 20090807
  Receipt Date: 20090807
  Transmission Date: 20100115
  Serious: Yes (Life-Threatening, Other)
  Sender: FDA-Public Use
  Company Number: None

PATIENT
  Age: 57 Year
  Sex: Female
  Weight: 99.7913 kg

DRUGS (2)
  1. AMBIEN CR [Suspect]
     Indication: INSOMNIA
     Dosage: 1 TABLET AT BEDTIME, DAILY, PO
     Route: 048
     Dates: start: 20080605, end: 20090722
  2. AMBIEN CR [Suspect]
     Indication: MIDDLE INSOMNIA
     Dosage: 1 TABLET AT BEDTIME, DAILY, PO
     Route: 048
     Dates: start: 20080605, end: 20090722

REACTIONS (5)
  - AGGRESSION [None]
  - AGITATION [None]
  - AMNESIA [None]
  - DEPRESSION [None]
  - SUICIDAL IDEATION [None]
